FAERS Safety Report 7771693-6 (Version None)
Quarter: 2011Q3

REPORT INFORMATION
  Report Type: 
  Country: None (occurrence: None)
  Receive Date: 20110922
  Receipt Date: 20110420
  Transmission Date: 20111222
  Serious: No
  Sender: FDA-Public Use
  Company Number: US-ASTRAZENECA-2011SE22679

PATIENT
  Age: 53 Year
  Sex: Female
  Weight: 81.6 kg

DRUGS (11)
  1. SOMA [Concomitant]
  2. PRAVACHOL [Concomitant]
  3. PROZAC [Concomitant]
  4. ASPIRIN [Concomitant]
  5. TOPAMAX [Concomitant]
  6. WELLBUTRIN [Concomitant]
  7. LAMICTAL [Concomitant]
  8. SEROQUEL XR [Suspect]
     Indication: BIPOLAR DISORDER
     Route: 048
  9. SEROQUEL XR [Suspect]
     Indication: SLEEP DISORDER
     Route: 048
  10. SYNTHROID [Concomitant]
  11. TYLENOL-500 [Concomitant]

REACTIONS (3)
  - OFF LABEL USE [None]
  - INSOMNIA [None]
  - DRUG DOSE OMISSION [None]
